FAERS Safety Report 16910211 (Version 1)
Quarter: 2019Q4

REPORT INFORMATION
  Report Type: Spontaneous
  Country: US (occurrence: US)
  Receive Date: 20191011
  Receipt Date: 20191011
  Transmission Date: 20200122
  Serious: No
  Sender: FDA-Public Use
  Company Number: US-TEVA-2019-US-1119344

PATIENT
  Age: 52 Year
  Sex: Male

DRUGS (1)
  1. TESTOSTERONE CYP INJ [Suspect]
     Active Substance: TESTOSTERONE CYPIONATE
     Dosage: STARTED USING THE PRODUCT APPROXIMATELY MARCH 2019 OR APRIL 2019
     Route: 065
     Dates: start: 2019, end: 2019

REACTIONS (4)
  - Eye disorder [Unknown]
  - Haemoglobin increased [Unknown]
  - Vision blurred [Unknown]
  - Hypertension [Unknown]
